FAERS Safety Report 5347017-0 (Version None)
Quarter: 2007Q2

REPORT INFORMATION
  Report Type: 
  Country: None (occurrence: None)
  Receive Date: 20070604
  Receipt Date: 20070529
  Transmission Date: 20071010
  Serious: Yes (Other)
  Sender: FDA-Public Use
  Company Number: CHNY2007DE02005

PATIENT
  Sex: Female

DRUGS (2)
  1. NICOTINE [Suspect]
     Dosage: 21 MG, TRANSDERMAL
     Route: 062
     Dates: start: 20070501, end: 20070501
  2. LEVOTHYROXINE SODIUM [Concomitant]

REACTIONS (1)
  - CARDIOVASCULAR DISORDER [None]
